FAERS Safety Report 19614654 (Version 1)
Quarter: 2021Q3

REPORT INFORMATION
  Report Type: Spontaneous
  Country: US (occurrence: US)
  Receive Date: 20210726
  Receipt Date: 20210726
  Transmission Date: 20211014
  Serious: Yes (Hospitalization)
  Sender: FDA-Public Use
  Company Number: None

PATIENT
  Age: 47 Year
  Sex: Female
  Weight: 93.3 kg

DRUGS (2)
  1. BEVACIZUMAB. [Suspect]
     Active Substance: BEVACIZUMAB
     Indication: ENDOMETRIAL CANCER
     Dosage: ?          OTHER FREQUENCY:DAYS 1,8,15;OTHER ROUTE:IV?
  2. NAB?PACLITAXEL [Suspect]
     Active Substance: PACLITAXEL
     Indication: ENDOMETRIAL CANCER
     Dosage: ?          OTHER FREQUENCY:DAYS 1,8,15;OTHER ROUTE:IV?
     Dates: start: 20210701

REACTIONS (4)
  - Blood potassium decreased [None]
  - Blood calcium decreased [None]
  - Abdominal pain [None]
  - Tumour haemorrhage [None]

NARRATIVE: CASE EVENT DATE: 20210724
